FAERS Safety Report 5455464-1 (Version None)
Quarter: 2007Q3

REPORT INFORMATION
  Report Type: 
  Country: None (occurrence: None)
  Receive Date: 20070918
  Receipt Date: 20070228
  Transmission Date: 20080115
  Serious: Yes (Other)
  Sender: FDA-Public Use
  Company Number: US-ASTRAZENECA-2006UW21252

PATIENT
  Age: 58 Year
  Sex: Female

DRUGS (3)
  1. SEROQUEL [Suspect]
     Indication: INSOMNIA
     Route: 048
     Dates: end: 20050101
  2. WELLBUTRIN [Concomitant]
     Dates: start: 20050218, end: 20060215
  3. LAMICTAL [Concomitant]
     Dates: start: 20050802, end: 20050820

REACTIONS (2)
  - DIABETES MELLITUS [None]
  - PANCREATITIS [None]
